FAERS Safety Report 18617653 (Version 2)
Quarter: 2021Q1

REPORT INFORMATION
  Report Type: Report from Study
  Country: DE (occurrence: DE)
  Receive Date: 20201215
  Receipt Date: 20210329
  Transmission Date: 20210419
  Serious: Yes (Hospitalization)
  Sender: FDA-Public Use
  Company Number: DE-TAKEDA-2020TUS055344

PATIENT
  Age: 64 Year
  Sex: Female
  Weight: 82 kg

DRUGS (24)
  1. CLONIDIN [Concomitant]
     Active Substance: CLONIDINE
     Indication: HYPERTONIA
     Dosage: 75 MILLIGRAM, QD
     Route: 065
  2. MAGNESIUM DIASPORAL 300 [Concomitant]
     Indication: HYPOPARATHYROIDISM
     Dosage: UNK UNK, QD
     Route: 065
  3. URSOFALK [Concomitant]
     Active Substance: URSODIOL
     Indication: RENAL FAILURE
     Dosage: 500 MILLIGRAM, BID
     Route: 065
  4. PANTOPRAZOL [PANTOPRAZOLE] [Concomitant]
     Active Substance: PANTOPRAZOLE
     Indication: GASTRIC DISORDER
     Dosage: 20 MILLIGRAM, BID
     Route: 065
  5. ESCITALOPRAM [Concomitant]
     Active Substance: ESCITALOPRAM OXALATE
     Indication: DEPRESSION
     Dosage: 10 MILLIGRAM, QD
     Route: 065
  6. AZITHROMYCIN ANHYDROUS. [Concomitant]
     Active Substance: AZITHROMYCIN ANHYDROUS
     Indication: LUNG TRANSPLANT
     Dosage: 250 MILLIGRAM, QD
     Route: 065
  7. PREDNISOLON [PREDNISOLONE] [Concomitant]
     Active Substance: PREDNISOLONE
     Indication: LUNG TRANSPLANT
     Dosage: 5 MILLIGRAM, QD
     Route: 065
  8. COTRIM FORTE [Concomitant]
     Active Substance: SULFAMETHOXAZOLE\TRIMETHOPRIM
     Indication: LUNG TRANSPLANT
     Dosage: 960 MILLIGRAM, QD
     Route: 065
  9. NEUPRO [Concomitant]
     Active Substance: ROTIGOTINE
     Indication: RESTLESS LEGS SYNDROME
     Dosage: 2 MILLIGRAM, QD
     Route: 061
  10. PARATHYROID HORMONE [Suspect]
     Active Substance: PARATHYROID HORMONE
     Indication: HYPOPARATHYROIDISM
     Dosage: 75 MICROGRAM, QD
     Route: 058
     Dates: start: 20180706
  11. INSULIN [Concomitant]
     Active Substance: INSULIN NOS
     Indication: DIABETES MELLITUS
     Dosage: 6 TO 8 U, AS NEEDED
     Route: 065
  12. METOHEXAL [METOPROLOL TARTRATE] [Concomitant]
     Active Substance: METOPROLOL TARTRATE
     Indication: HYPERTONIA
     Dosage: 47.5 MILLIGRAM, BID
     Route: 065
  13. PRAVASTATIN NTN [Concomitant]
     Indication: BLOOD CHOLESTEROL INCREASED
     Dosage: 20 MILLIGRAM, BID
     Route: 065
  14. PARATHYROID HORMONE [Suspect]
     Active Substance: PARATHYROID HORMONE
     Indication: HYPOPARATHYROIDISM
     Dosage: 75 MICROGRAM, QD
     Route: 058
     Dates: start: 20180706
  15. CALCITRIOL. [Concomitant]
     Active Substance: CALCITRIOL
     Indication: HYPOPARATHYROIDISM
     Dosage: 0.25 MICROGRAM, QD
     Route: 048
  16. DEKRISTOL [Concomitant]
     Active Substance: CHOLECALCIFEROL
     Indication: HYPOPARATHYROIDISM
     Dosage: 20000 INTERNATIONAL UNIT, 2/WEEK
     Route: 048
  17. L?THYROXINE [LEVOTHYROXINE] [Concomitant]
     Active Substance: LEVOTHYROXINE
     Indication: THYROID OPERATION
     Dosage: 100 MICROGRAM, QD
     Route: 048
  18. PROGRAF [Concomitant]
     Active Substance: TACROLIMUS
     Indication: LUNG TRANSPLANT
     Dosage: 1 MILLIGRAM, BID
     Route: 065
  19. MYFORTIC [Concomitant]
     Active Substance: MYCOPHENOLATE SODIUM
     Indication: LUNG TRANSPLANT
     Dosage: 360 MILLIGRAM, BID
     Route: 065
  20. FRUBIASE CALCIUM [CALCIUM CARBONATE] [Concomitant]
     Indication: HYPOPARATHYROIDISM
     Dosage: UNK UNK, TID
     Route: 065
  21. PARATHYROID HORMONE [Suspect]
     Active Substance: PARATHYROID HORMONE
     Indication: HYPOPARATHYROIDISM
     Dosage: 75 MICROGRAM, QD
     Route: 058
     Dates: start: 20180706
  22. MAGNESIUM VERLA [MAGNESIUM] [Concomitant]
     Indication: HYPOPARATHYROIDISM
     Dosage: 1.65 MILLIMOLE, TID
     Route: 048
  23. CERTICAN [Concomitant]
     Active Substance: EVEROLIMUS
     Indication: LUNG TRANSPLANT
     Dosage: 1 MILLIGRAM, BID
     Route: 065
  24. AMLODIPINE [Concomitant]
     Active Substance: AMLODIPINE BESYLATE
     Indication: HYPERTONIA
     Dosage: 5 MILLIGRAM, BID
     Route: 065

REACTIONS (2)
  - Intrathecal pump insertion [Not Recovered/Not Resolved]
  - Abdominal pain lower [Not Recovered/Not Resolved]

NARRATIVE: CASE EVENT DATE: 202011
